FAERS Safety Report 19508674 (Version 1)
Quarter: 2021Q3

REPORT INFORMATION
  Report Type: Spontaneous
  Country: DE (occurrence: DE)
  Receive Date: 20210708
  Receipt Date: 20210708
  Transmission Date: 20211014
  Serious: Yes (Hospitalization, Other)
  Sender: FDA-Public Use
  Company Number: DE-PFIZER INC-2021770582

PATIENT
  Age: 74 Year
  Sex: Male

DRUGS (15)
  1. DIGITOXIN [Concomitant]
     Active Substance: DIGITOXIN
     Dosage: 0.05 MG, 1X/DAY, 1?0?0?0, TABLETT
  2. EMPAGLIFLOZIN [Concomitant]
     Active Substance: EMPAGLIFLOZIN
     Dosage: 10 MG, 1?0?0?0, TABLET
  3. EPLERENONE. [Concomitant]
     Active Substance: EPLERENONE
     Dosage: 50 MG, 1?0?0?0, TABLET
  4. INSULIN GLARGINE [Concomitant]
     Active Substance: INSULIN GLARGINE
     Dosage: 16 IU, 0?0?0?1, SOLUTION FOR INJECTION / INFUSION
     Route: 058
  5. PERENTEROL [Concomitant]
     Active Substance: SACCHAROMYCES CEREVISIAE
     Dosage: 1 DF, 2X/DAY,  1?0?1?0, TABLETTEN
  6. METOPROLOL. [Concomitant]
     Active Substance: METOPROLOL
     Dosage: 47.5 MG, 1?0?1?0, TABLET
  7. LACTULOSE. [Concomitant]
     Active Substance: LACTULOSE
     Dosage: 5 ML, AS NEEDED, , SYRUP
  8. TORASEMID [Suspect]
     Active Substance: TORSEMIDE
     Dosage: 20 MG, 1X/DAY, 1?0?0?0, TABLET
  9. RISPERIDON [Concomitant]
     Active Substance: RISPERIDONE
     Dosage: 0.25 MG, 1X/DAY, 0?0?0?1, TABLET
  10. APIXABAN [Concomitant]
     Active Substance: APIXABAN
     Dosage: 5 MG, 2X/DAY, 1?0?1?0, TABLET
  11. INSULIN LISPRO [Concomitant]
     Active Substance: INSULIN LISPRO
     Dosage: ACCORDING TO PLAN, SOLUTION FOR INJECTION / INFUSION
     Route: 058
  12. LEVOTHYROXINE SODIUM\POTASSIUM IODIDE [Concomitant]
     Active Substance: LEVOTHYROXINE SODIUM\POTASSIUM IODIDE
     Dosage: 75 UG, 1?0?0?0, TABLET
  13. UNACID (AMPICILLIN SODIUM/SULBACTAM SODIUM) [Suspect]
     Active Substance: AMPICILLIN SODIUM\SULBACTAM SODIUM
     Dosage: UNK
  14. ENTRESTO [Concomitant]
     Active Substance: SACUBITRIL\VALSARTAN
     Dosage: 1?0?1?0, TABLET
  15. CYANOCOBALAMIN. [Concomitant]
     Active Substance: CYANOCOBALAMIN
     Dosage: 1 DF, 1X/DAY, 1?0?0?0, TABLET

REACTIONS (5)
  - Dehydration [Unknown]
  - Diarrhoea [Unknown]
  - General physical health deterioration [Unknown]
  - Acute kidney injury [Unknown]
  - Haematochezia [Unknown]
